FAERS Safety Report 7528324-X (Version None)
Quarter: 2011Q2

REPORT INFORMATION
  Report Type: 
  Country: None (occurrence: None)
  Receive Date: 20110607
  Receipt Date: 20110531
  Transmission Date: 20111010
  Serious: Yes (Other)
  Sender: FDA-Public Use
  Company Number: CA-US-EMD SERONO, INC.-7028542

PATIENT
  Sex: Female

DRUGS (28)
  1. CESAMET [Concomitant]
  2. CYCLOBENZAPRINE [Concomitant]
  3. FLOVENT [Concomitant]
  4. ZIMBALTA [Concomitant]
  5. PANTOTRAZOLE (PANTOPRAZOLE) [Concomitant]
  6. ACETOMINOPHEN (ACETAMINOPHEN) [Concomitant]
  7. SENTANYL [Concomitant]
  8. RATIO SALBUTAMOL [Concomitant]
  9. ACTONEL [Concomitant]
  10. GABANPANTIN (GABAPENTIN) [Concomitant]
  11. APO-SALVENT [Concomitant]
  12. PHEMAVIN [Concomitant]
     Indication: MENOPAUSE
  13. REBIF [Suspect]
     Indication: MULTIPLE SCLEROSIS
     Dates: start: 20091008
  14. SANDOZ-SENNOSIDEL (SENNOSIDE A+B) [Concomitant]
  15. CALCIUM CARBONATE [Concomitant]
  16. RABAPROSOL [Concomitant]
  17. PRO LORAZEPAM [Concomitant]
  18. ESTRACE [Concomitant]
  19. COZAR (COZAAR) [Concomitant]
  20. JAMP SULPHATE FERROUS [Concomitant]
  21. HYZAAR [Concomitant]
  22. PIRIVA (SPIRIVA) [Concomitant]
  23. LIPITOR [Concomitant]
  24. PRO AAS CHEWABLE [Concomitant]
  25. PMS NYSTATIN [Concomitant]
  26. AMITRYPTILINE (AMITRIPTYLINE) [Concomitant]
  27. CALCIUM WITH VIT 3 [Concomitant]
  28. NAPROX [Concomitant]

REACTIONS (18)
  - OEDEMA PERIPHERAL [None]
  - SNEEZING [None]
  - GASTROOESOPHAGEAL REFLUX DISEASE [None]
  - HEPATIC ENZYME ABNORMAL [None]
  - HYPERTENSION [None]
  - BACK PAIN [None]
  - INJECTION SITE ERYTHEMA [None]
  - DIARRHOEA [None]
  - INFLUENZA LIKE ILLNESS [None]
  - NAUSEA [None]
  - ASTHENIA [None]
  - GINGIVAL DISORDER [None]
  - BONE DISORDER [None]
  - INJECTION SITE PRURITUS [None]
  - ANAEMIA [None]
  - WEIGHT INCREASED [None]
  - ULCER [None]
  - VOMITING [None]
